FAERS Safety Report 5964550-9 (Version None)
Quarter: 2008Q4

REPORT INFORMATION
  Report Type: 
  Country: None (occurrence: None)
  Receive Date: 20081125
  Receipt Date: 20081120
  Transmission Date: 20090506
  Serious: Yes (Death)
  Sender: FDA-Public Use
  Company Number: US-BRISTOL-MYERS SQUIBB COMPANY-14414346

PATIENT
  Age: 3 Decade
  Sex: Female

DRUGS (6)
  1. ABILIFY [Suspect]
     Indication: TURNER'S SYNDROME
  2. ABILIFY [Suspect]
     Indication: SCHIZOAFFECTIVE DISORDER
  3. ABILIFY [Suspect]
     Indication: MILD MENTAL RETARDATION
  4. LEXAPRO [Suspect]
     Indication: TURNER'S SYNDROME
  5. LEXAPRO [Suspect]
     Indication: SCHIZOAFFECTIVE DISORDER
  6. LEXAPRO [Suspect]
     Indication: MILD MENTAL RETARDATION

REACTIONS (1)
  - DEATH [None]
